FAERS Safety Report 10213211 (Version 1)
Quarter: 2014Q2

REPORT INFORMATION
  Report Type: Spontaneous
  Country: US (occurrence: US)
  Receive Date: 20140603
  Receipt Date: 20140603
  Transmission Date: 20141212
  Serious: Yes (Hospitalization)
  Sender: FDA-Public Use
  Company Number: US-BRISTOL-MYERS SQUIBB COMPANY-20843603

PATIENT
  Age: 54 Year
  Sex: Female
  Weight: 65.76 kg

DRUGS (2)
  1. COUMADIN [Suspect]
  2. MIFEPRISTONE [Interacting]
     Indication: CUSHING^S SYNDROME
     Dosage: INT ON 6-MAY14
     Route: 048
     Dates: start: 20140410

REACTIONS (6)
  - Loss of consciousness [Unknown]
  - Sepsis [Unknown]
  - Cellulitis [Unknown]
  - Blood glucose decreased [Unknown]
  - International normalised ratio increased [Unknown]
  - Drug interaction [Unknown]
